FAERS Safety Report 17175548 (Version 1)
Quarter: 2019Q4

REPORT INFORMATION
  Report Type: Report from Study
  Country: GB (occurrence: GB)
  Receive Date: 20191219
  Receipt Date: 20191219
  Transmission Date: 20200122
  Serious: Yes (Other)
  Sender: FDA-Public Use
  Company Number: GB-JNJFOC-20191225699

PATIENT
  Sex: Female

DRUGS (1)
  1. STELARA [Suspect]
     Active Substance: USTEKINUMAB
     Indication: PSORIATIC ARTHROPATHY
     Dosage: 45MG/0.5ML
     Route: 058
     Dates: start: 20190321

REACTIONS (3)
  - Malaise [Unknown]
  - Surgery [Unknown]
  - Fatigue [Unknown]
